FAERS Safety Report 9633497 (Version 3)
Quarter: 2013Q4

REPORT INFORMATION
  Report Type: Spontaneous
  Country: KR (occurrence: KR)
  Receive Date: 20131021
  Receipt Date: 20131121
  Transmission Date: 20140711
  Serious: Yes (Death)
  Sender: FDA-Public Use
  Company Number: PHHY2013KR117735

PATIENT
  Age: 55 Year
  Sex: Male

DRUGS (3)
  1. EVEROLIMUS [Suspect]
     Indication: GASTRIC CANCER
     Dosage: 5 MG, BID; 5 MG TWICE DAILY, GIVEN ON DAYS 1 TO 21 WITHOUT REST.
     Dates: start: 20111024, end: 20120222
  2. EVEROLIMUS [Suspect]
     Indication: OFF LABEL USE
  3. CAPECITABINE [Suspect]
     Indication: GASTRIC CANCER
     Dosage: 650 MG/M2, BID; GIVEN ON DAYS 1 TO 14 FOLLOWED BY A 7 DAY REST PERIOD

REACTIONS (7)
  - Malignant neoplasm progression [Fatal]
  - Neuropathy peripheral [Unknown]
  - Palmar-plantar erythrodysaesthesia syndrome [Unknown]
  - Anaemia [Unknown]
  - Thrombocytopenia [Unknown]
  - Decreased appetite [Unknown]
  - Stomatitis [Unknown]
